FAERS Safety Report 7560990-5 (Version None)
Quarter: 2011Q2

REPORT INFORMATION
  Report Type: 
  Country: None (occurrence: None)
  Receive Date: 20110621
  Receipt Date: 20110613
  Transmission Date: 20111010
  Serious: Yes (Hospitalization)
  Sender: FDA-Public Use
  Company Number: US-CELGENEUS-163-21880-11060281

PATIENT
  Age: 77 Year
  Sex: Male

DRUGS (26)
  1. PREDNISONE [Concomitant]
     Route: 065
  2. ANCEF [Concomitant]
     Route: 055
  3. GENTAMYCIN SULFATE [Concomitant]
     Route: 055
  4. SPIRIVA [Concomitant]
     Route: 055
  5. COUMADIN [Concomitant]
     Route: 055
  6. MORPHINE [Concomitant]
     Route: 055
  7. ZOFRAN [Concomitant]
     Route: 055
  8. PLAVIX [Concomitant]
     Route: 065
  9. ALLOPURINOL [Concomitant]
     Route: 065
  10. POTASSIUM [Concomitant]
     Route: 055
  11. LACTULOSE [Concomitant]
     Route: 055
  12. PEPCID [Concomitant]
     Route: 065
  13. IMDUR [Concomitant]
     Route: 065
  14. SIMVASTATIN [Concomitant]
     Route: 065
  15. REVLIMID [Suspect]
     Indication: MULTIPLE MYELOMA
     Dosage: 25 MILLIGRAM
     Route: 048
     Dates: start: 20100310, end: 20100601
  16. DEXAMETHASONE [Suspect]
     Indication: MULTIPLE MYELOMA
     Dosage: 20 MILLIGRAM
     Route: 048
     Dates: start: 20100310, end: 20100601
  17. ASPIRIN [Concomitant]
     Route: 065
  18. BACITRACIN [Concomitant]
     Route: 055
  19. COLACE [Concomitant]
     Route: 055
  20. ZOCOR [Concomitant]
     Route: 055
  21. ISONIAZID [Concomitant]
     Route: 065
  22. TENORMIN [Concomitant]
     Route: 055
  23. OS-CAL [Concomitant]
     Route: 055
  24. ATENOLOL [Concomitant]
     Route: 065
  25. MARINOL [Concomitant]
     Route: 055
  26. HEPARIN [Concomitant]
     Route: 041

REACTIONS (5)
  - ATRIAL FIBRILLATION [None]
  - URINARY TRACT INFECTION [None]
  - BLADDER DILATATION [None]
  - PANCYTOPENIA [None]
  - GASTROINTESTINAL HAEMORRHAGE [None]
